FAERS Safety Report 4692298-X (Version None)
Quarter: 2005Q2

REPORT INFORMATION
  Report Type: 
  Country: None (occurrence: None)
  Receive Date: 20050614
  Receipt Date: 20050601
  Transmission Date: 20051028
  Serious: Yes (Death, Life-Threatening)
  Sender: FDA-Public Use
  Company Number: 2005084233

PATIENT
  Age: 73 Year
  Sex: Male

DRUGS (7)
  1. FLUCONAZOLE [Suspect]
     Indication: INFECTION
     Dosage: INTRAVENOUS
     Route: 042
     Dates: start: 20050116, end: 20050120
  2. AMPHOTERICIN B [Suspect]
     Indication: INFECTION
     Dosage: INTRAVENOUS
     Route: 042
     Dates: start: 20050120, end: 20050203
  3. VANCOMYCIN [Suspect]
     Indication: INFECTION
     Dosage: INTRAVENOUS
     Route: 042
     Dates: start: 20050116, end: 20050216
  4. TIENAM (CILASTATIN, IMIPENEM) [Suspect]
     Indication: INFECTION
     Dosage: INTRAVENOUS
     Route: 042
     Dates: start: 20050116, end: 20050216
  5. METHOTREXATE [Concomitant]
  6. ETANERCEPT [Concomitant]
  7. METRONIDAZOLE [Concomitant]

REACTIONS (2)
  - BICYTOPENIA [None]
  - SEPTIC SHOCK [None]
